FAERS Safety Report 18890151 (Version 3)
Quarter: 2021Q2

REPORT INFORMATION
  Report Type: Spontaneous
  Country: CA (occurrence: CA)
  Receive Date: 20210214
  Receipt Date: 20210414
  Transmission Date: 20210717
  Serious: Yes (Other)
  Sender: FDA-Public Use
  Company Number: CA-ROCHE-2705045

PATIENT
  Age: 31 Year
  Sex: Male

DRUGS (1)
  1. AVASTIN [Suspect]
     Active Substance: BEVACIZUMAB
     Indication: LARYNGEAL PAPILLOMA
     Route: 065

REACTIONS (18)
  - Pain [Recovered/Resolved]
  - Angina pectoris [Recovered/Resolved]
  - Dissociation [Not Recovered/Not Resolved]
  - Noninfective encephalitis [Unknown]
  - Off label use [Unknown]
  - Sensory loss [Unknown]
  - Glare [Unknown]
  - Vision blurred [Unknown]
  - Vomiting [Recovered/Resolved]
  - Disorientation [Recovering/Resolving]
  - Troponin increased [Unknown]
  - Skin discolouration [Unknown]
  - Nausea [Recovered/Resolved]
  - Product administration error [Unknown]
  - Dizziness postural [Not Recovered/Not Resolved]
  - Paraesthesia [Unknown]
  - Hypoaesthesia [Recovered/Resolved]
  - Muscular weakness [Not Recovered/Not Resolved]

NARRATIVE: CASE EVENT DATE: 20200916
